FAERS Safety Report 9494863 (Version 5)
Quarter: 2014Q1

REPORT INFORMATION
  Report Type: Spontaneous
  Country: US (occurrence: US)
  Receive Date: 20130903
  Receipt Date: 20140102
  Transmission Date: 20141002
  Serious: Yes (Death, Hospitalization, Other)
  Sender: FDA-Public Use
  Company Number: US-009507513-1308USA014489

PATIENT
  Sex: Male
  Weight: 63.49 kg

DRUGS (8)
  1. JANUVIA [Suspect]
     Indication: TYPE 2 DIABETES MELLITUS
     Dosage: 100 MG, UNK
     Route: 048
     Dates: start: 2006, end: 201208
  2. JANUMET [Suspect]
     Indication: TYPE 2 DIABETES MELLITUS
     Dosage: 50/1000 MG BID
     Route: 048
     Dates: start: 2006, end: 201209
  3. JANUMET XR [Suspect]
     Dosage: 100 MG, QD/100/1000MG
     Route: 048
  4. METFORMIN [Concomitant]
     Indication: TYPE 2 DIABETES MELLITUS
     Dosage: 1000 MG, BID
  5. GLIPIZIDE [Concomitant]
  6. GLUCOTROL XL [Concomitant]
     Indication: TYPE 2 DIABETES MELLITUS
     Dosage: 5 MG, UNK
     Route: 048
  7. PROCARDIA XL [Concomitant]
     Dosage: 60 MG, QD
     Route: 048
  8. LORATADINE [Concomitant]
     Indication: HYPERSENSITIVITY
     Dosage: 10 MG, QD AS NEEDED

REACTIONS (74)
  - Pancreatic carcinoma metastatic [Not Recovered/Not Resolved]
  - Cholecystectomy [Unknown]
  - Prostate cancer [Fatal]
  - Atelectasis [Unknown]
  - Abdominal abscess [Recovering/Resolving]
  - Metastatic neoplasm [Fatal]
  - Metastases to liver [Unknown]
  - Dysphagia [Recovered/Resolved]
  - Diabetes mellitus inadequate control [Not Recovered/Not Resolved]
  - Colon cancer [Fatal]
  - Bile duct stent insertion [Unknown]
  - Metastases to liver [Unknown]
  - Fall [Unknown]
  - Hypercalcaemia [Unknown]
  - Leukocytosis [Unknown]
  - Dehydration [Unknown]
  - Volume blood decreased [Unknown]
  - Grief reaction [Unknown]
  - Fall [Unknown]
  - Insomnia [Unknown]
  - Respiratory distress [Not Recovered/Not Resolved]
  - Pneumonia [Unknown]
  - Cholecystitis [Unknown]
  - Blood glucose fluctuation [Unknown]
  - Dehydration [Unknown]
  - Multi-organ failure [Fatal]
  - Hypovolaemia [Unknown]
  - Salivary gland neoplasm [Unknown]
  - Bile duct obstruction [Unknown]
  - Major depression [Unknown]
  - Fall [Unknown]
  - Prostatic operation [Unknown]
  - Renal failure acute [Unknown]
  - Pancreatitis [Recovered/Resolved]
  - Appendicectomy [Unknown]
  - Acquired oesophageal web [Unknown]
  - Abnormal loss of weight [Unknown]
  - Radiotherapy [Unknown]
  - Essential hypertension [Unknown]
  - Insomnia [Unknown]
  - Coronary artery disease [Unknown]
  - Osteoarthritis [Unknown]
  - Arteriosclerosis [Unknown]
  - Anxiety [Unknown]
  - Depression [Unknown]
  - Bone deformity [Unknown]
  - Hyperlipidaemia [Unknown]
  - Renal stone removal [Unknown]
  - Amnesia [Unknown]
  - Cardiac murmur [Unknown]
  - Pneumonia [Recovered/Resolved]
  - Benign prostatic hyperplasia [Unknown]
  - Depression [Unknown]
  - Malnutrition [Unknown]
  - Hypokalaemia [Unknown]
  - Confusional state [Unknown]
  - Radiotherapy to prostate [Unknown]
  - Acute respiratory failure [Unknown]
  - Heart rate irregular [Unknown]
  - Psoriasis [Unknown]
  - Ileus [Unknown]
  - Pathological fracture [Unknown]
  - Anaemia [Unknown]
  - Hepatic cyst [Unknown]
  - Abscess drainage [Unknown]
  - Lymphadenopathy [Unknown]
  - Contusion [Unknown]
  - Dysarthria [Unknown]
  - Gait disturbance [Unknown]
  - Rash pustular [Unknown]
  - Nodule [Unknown]
  - Vomiting [Unknown]
  - Abdominal pain [Unknown]
  - Nausea [Unknown]
